FAERS Safety Report 6565916-9 (Version None)
Quarter: 2010Q1

REPORT INFORMATION
  Report Type: 
  Country: None (occurrence: None)
  Receive Date: 20100119
  Receipt Date: 20100119
  Transmission Date: 20100710
  Serious: Yes (Other)
  Sender: FDA-Public Use
  Company Number: None

PATIENT
  Age: 23 Year
  Sex: Female
  Weight: 56.6996 kg

DRUGS (2)
  1. IBUPROFEN [Suspect]
     Indication: HEADACHE
     Dosage: 400MG T 800MG 5 TIMES A WEEK PO OVER A YEAR
     Route: 048
  2. IBUPROFEN [Suspect]
     Indication: MIGRAINE
     Dosage: 400MG T 800MG 5 TIMES A WEEK PO OVER A YEAR
     Route: 048

REACTIONS (7)
  - ABDOMINAL PAIN UPPER [None]
  - DRUG INEFFECTIVE [None]
  - HYPOPHAGIA [None]
  - NAUSEA [None]
  - PRODUCT QUALITY ISSUE [None]
  - ULCER [None]
  - VOMITING [None]
